FAERS Safety Report 12919605 (Version 1)
Quarter: 2016Q4

REPORT INFORMATION
  Report Type: Spontaneous
  Country: PT (occurrence: PT)
  Receive Date: 20161108
  Receipt Date: 20161108
  Transmission Date: 20170207
  Serious: Yes (Other)
  Sender: FDA-Public Use
  Company Number: PT-ROCHE-1848829

PATIENT
  Age: 37 Year
  Sex: Female
  Weight: 61 kg

DRUGS (6)
  1. ZOLEDRONIC ACID [Suspect]
     Active Substance: ZOLEDRONIC ACID
     Indication: INVASIVE BREAST CARCINOMA
     Route: 042
     Dates: start: 20150622, end: 20150914
  2. TRASTUZUMAB [Suspect]
     Active Substance: TRASTUZUMAB
     Route: 042
     Dates: start: 20150622, end: 20150914
  3. PERTUZUMAB [Suspect]
     Active Substance: PERTUZUMAB
     Indication: INVASIVE BREAST CARCINOMA
     Route: 042
     Dates: start: 201506, end: 201506
  4. TRASTUZUMAB [Suspect]
     Active Substance: TRASTUZUMAB
     Indication: INVASIVE BREAST CARCINOMA
     Route: 042
     Dates: start: 201506, end: 201506
  5. PERTUZUMAB [Suspect]
     Active Substance: PERTUZUMAB
     Route: 042
     Dates: start: 20150622, end: 20150914
  6. DOCETAXEL. [Suspect]
     Active Substance: DOCETAXEL
     Indication: INVASIVE BREAST CARCINOMA
     Route: 042
     Dates: start: 201506, end: 20150914

REACTIONS (4)
  - Myalgia [Unknown]
  - Vertebral lesion [Unknown]
  - Arthralgia [Unknown]
  - Bone lesion [Unknown]

NARRATIVE: CASE EVENT DATE: 20150703
